FAERS Safety Report 10287255 (Version 2)
Quarter: 2014Q3

REPORT INFORMATION
  Report Type: Spontaneous
  Country: US (occurrence: None)
  Receive Date: 20140707
  Receipt Date: 20140724
  Transmission Date: 20150326
  Serious: Yes (Congenital Anomaly, Other)
  Sender: FDA-Public Use
  Company Number: 2014AP003542

PATIENT
  Age: 0 Day
  Sex: Male
  Weight: 2.7 kg

DRUGS (1)
  1. PAXIL [Suspect]
     Active Substance: PAROXETINE HYDROCHLORIDE
     Indication: PRODUCT USED FOR UNKNOWN INDICATION
     Route: 064

REACTIONS (3)
  - Maternal drugs affecting foetus [None]
  - Talipes [None]
  - Foetal exposure during pregnancy [None]

NARRATIVE: CASE EVENT DATE: 20060701
